FAERS Safety Report 4954273-7 (Version None)
Quarter: 2006Q1

REPORT INFORMATION
  Report Type: 
  Country: None (occurrence: None)
  Receive Date: 20060327
  Receipt Date: 20050526
  Transmission Date: 20060701
  Serious: Yes (Hospitalization, Disabling)
  Sender: FDA-Public Use
  Company Number: US-MERCK-0505USA03435

PATIENT
  Age: 41 Year
  Sex: Male
  Weight: 82 kg

DRUGS (2)
  1. VIOXX [Suspect]
     Route: 048
  2. ALEVE [Concomitant]
     Route: 048

REACTIONS (5)
  - CARPAL TUNNEL SYNDROME [None]
  - JOINT INJURY [None]
  - LIGAMENT INJURY [None]
  - MYOCARDIAL INFARCTION [None]
  - SCIATICA [None]
